FAERS Safety Report 17578358 (Version 1)
Quarter: 2020Q1

REPORT INFORMATION
  Report Type: Spontaneous
  Country: AT (occurrence: AT)
  Receive Date: 20200324
  Receipt Date: 20200324
  Transmission Date: 20200409
  Serious: Yes (Other)
  Sender: FDA-Public Use
  Company Number: AT-MYLANLABS-2020M1027939

PATIENT
  Age: 59 Year
  Sex: Female

DRUGS (6)
  1. ARIPIPRAZOLE. [Suspect]
     Active Substance: ARIPIPRAZOLE
     Indication: DEPRESSION
     Dosage: 5 MILLIGRAM, QD (5 MG, QD)
     Route: 065
  2. CANDESARTAN. [Interacting]
     Active Substance: CANDESARTAN
     Indication: HYPERTENSION
     Dosage: UNK (32/12MG, QD)
     Route: 065
  3. DULOXETINE. [Interacting]
     Active Substance: DULOXETINE
     Indication: CONSTIPATION
     Dosage: UNK
     Route: 065
  4. DULOXETINE. [Interacting]
     Active Substance: DULOXETINE
     Indication: DEPRESSION
  5. BISOPROLOL [Interacting]
     Active Substance: BISOPROLOL
     Indication: HYPERTENSION
     Dosage: 1.25 MILLIGRAM, QD (1.25 MG, QD)
     Route: 065
  6. DULOXETINE. [Interacting]
     Active Substance: DULOXETINE
     Indication: SLEEP DISORDER
     Dosage: 30 MILLIGRAM, QD (30 MG, QD)
     Route: 065

REACTIONS (5)
  - Myalgia [Recovered/Resolved]
  - Muscle disorder [Recovered/Resolved]
  - Drug interaction [Recovered/Resolved]
  - Musculoskeletal stiffness [Recovered/Resolved]
  - Muscular weakness [Recovered/Resolved]
